FAERS Safety Report 7656283-8 (Version None)
Quarter: 2011Q3

REPORT INFORMATION
  Report Type: 
  Country: None (occurrence: None)
  Receive Date: 20110804
  Receipt Date: 20110729
  Transmission Date: 20111222
  Serious: Yes (Other)
  Sender: FDA-Public Use
  Company Number: TR-GLAXOSMITHKLINE-B0736858A

PATIENT
  Sex: Female
  Weight: 65 kg

DRUGS (1)
  1. ALLI [Suspect]
     Indication: WEIGHT DECREASED
     Dosage: 3CAP PER DAY
     Route: 065
     Dates: start: 20110725, end: 20110727

REACTIONS (1)
  - DIARRHOEA HAEMORRHAGIC [None]
